FAERS Safety Report 6143093-6 (Version None)
Quarter: 2009Q2

REPORT INFORMATION
  Report Type: 
  Country: None (occurrence: None)
  Receive Date: 20090403
  Receipt Date: 20090401
  Transmission Date: 20091009
  Serious: Yes (Hospitalization)
  Sender: FDA-Public Use
  Company Number: PHHO2006SI19901

PATIENT
  Sex: Female
  Weight: 80 kg

DRUGS (1)
  1. CGS 20267 T30748+ [Suspect]
     Indication: BREAST CANCER
     Dosage: 2.5 MG, QD
     Route: 048
     Dates: start: 20010928, end: 20061005

REACTIONS (7)
  - ANGIOPLASTY [None]
  - ARTERIAL STENT INSERTION [None]
  - BLOOD THYROID STIMULATING HORMONE INCREASED [None]
  - CAROTID ARTERY STENOSIS [None]
  - CHEST PAIN [None]
  - MYOCARDIAL ISCHAEMIA [None]
  - NECK PAIN [None]
